FAERS Safety Report 8377236-0 (Version None)
Quarter: 2012Q2

REPORT INFORMATION
  Report Type: 
  Country: None (occurrence: None)
  Receive Date: 20120522
  Receipt Date: 20120515
  Transmission Date: 20120825
  Serious: Yes (Hospitalization)
  Sender: FDA-Public Use
  Company Number: FR-ROCHE-1069552

PATIENT
  Sex: Female
  Weight: 3.82 kg

DRUGS (6)
  1. VITAMIN A [Concomitant]
     Route: 048
     Dates: start: 20120322
  2. VITAMIN K TAB [Concomitant]
     Route: 048
     Dates: start: 20120322
  3. CLONAZEPAM [Suspect]
     Indication: PRODUCT USED FOR UNKNOWN INDICATION
     Route: 042
     Dates: start: 20120326, end: 20120405
  4. PHENOBARBITAL TAB [Suspect]
     Indication: PRODUCT USED FOR UNKNOWN INDICATION
     Dosage: NEW INJECTION ON ON 26/MAR/2012 OF 10 MG/KG
     Route: 042
     Dates: start: 20120324, end: 20120328
  5. UVESTEROL D [Concomitant]
     Route: 048
     Dates: start: 20120322
  6. VITAMIN E [Concomitant]
     Route: 048
     Dates: start: 20120322

REACTIONS (1)
  - NEONATAL RESPIRATORY DEPRESSION [None]
